FAERS Safety Report 16186099 (Version 1)
Quarter: 2019Q2

REPORT INFORMATION
  Report Type: Spontaneous
  Country: US (occurrence: US)
  Receive Date: 20190308
  Receipt Date: 20190308
  Transmission Date: 20190711
  Serious: Yes (Other)
  Sender: FDA-Public Use
  Company Number: None

PATIENT
  Age: 50 Year
  Sex: Female

DRUGS (1)
  1. OMEGA-3-ACID ETHYL ESTERS CAPSULES [Suspect]
     Active Substance: OMEGA-3-ACID ETHYL ESTERS
     Indication: HYPERCHOLESTEROLAEMIA
     Dosage: ?          QUANTITY:120 DF DOSAGE FORM;?
     Route: 048
     Dates: start: 2010, end: 201802

REACTIONS (4)
  - Dysgeusia [None]
  - Poor quality product administered [None]
  - Product complaint [None]
  - Product odour abnormal [None]
